FAERS Safety Report 12471184 (Version 1)
Quarter: 2016Q2

REPORT INFORMATION
  Report Type: Spontaneous
  Country: US (occurrence: None)
  Receive Date: 20160615
  Receipt Date: 20160615
  Transmission Date: 20160815
  Serious: Yes (Hospitalization)
  Sender: FDA-Public Use
  Company Number: None

PATIENT
  Age: 46 Year
  Sex: Female

DRUGS (10)
  1. HYDROCO/APAP [Concomitant]
     Active Substance: ACETAMINOPHEN\HYDROCODONE
  2. XARELTO [Concomitant]
     Active Substance: RIVAROXABAN
  3. MORPHINE [Concomitant]
     Active Substance: MORPHINE
  4. CAPECITAB INE 500MG TEVA PHARMACEUTICALS USA INC [Suspect]
     Active Substance: CAPECITABINE
     Indication: COLON CANCER
     Route: 048
     Dates: start: 20160526
  5. VITAMIN C [Concomitant]
     Active Substance: ASCORBIC ACID
  6. VITAMIN D [Concomitant]
     Active Substance: CHOLECALCIFEROL
  7. SERTRALINE [Concomitant]
     Active Substance: SERTRALINE HYDROCHLORIDE
  8. ATENOLOL. [Concomitant]
     Active Substance: ATENOLOL
  9. CELEBREX [Concomitant]
     Active Substance: CELECOXIB
  10. LORAZEPAM. [Concomitant]
     Active Substance: LORAZEPAM

REACTIONS (3)
  - Dehydration [None]
  - Malaise [None]
  - Vomiting [None]

NARRATIVE: CASE EVENT DATE: 201606
